FAERS Safety Report 5743437-0 (Version None)
Quarter: 2008Q2

REPORT INFORMATION
  Report Type: 
  Country: None (occurrence: None)
  Receive Date: 20080519
  Receipt Date: 20080519
  Transmission Date: 20081010
  Serious: Yes (Death)
  Sender: FDA-Public Use
  Company Number: None

PATIENT
  Age: 69 Year
  Sex: Male
  Weight: 90.7194 kg

DRUGS (1)
  1. DIGITEX 125 MCG BERTEK PHARM [Suspect]
     Dosage: 1 TABLET DAILY PO
     Route: 048
     Dates: start: 20070813, end: 20071113

REACTIONS (1)
  - CARDIAC DISORDER [None]
